FAERS Safety Report 5827545-1 (Version None)
Quarter: 2008Q2

REPORT INFORMATION
  Report Type: 
  Country: None (occurrence: None)
  Receive Date: 20080601
  Receipt Date: 20080207
  Transmission Date: 20081010
  Serious: No
  Sender: FDA-Public Use
  Company Number: US200802001801

PATIENT
  Age: 55 Year
  Sex: Female

DRUGS (8)
  1. BYETTA [Suspect]
     Indication: TYPE 2 DIABETES MELLITUS
     Dosage: 5 UG, 2/D, SUBCUTANEOUS; 10 UG, 2/D, SUBCUTANEOUS
     Route: 058
     Dates: start: 20070301, end: 20070601
  2. BYETTA [Suspect]
     Indication: TYPE 2 DIABETES MELLITUS
     Dosage: 5 UG, 2/D, SUBCUTANEOUS; 10 UG, 2/D, SUBCUTANEOUS
     Route: 058
     Dates: start: 20070601
  3. EXENATIDE 10MCG PEN, DISPOSABLE DEVICE (EXENATIDE PEN (10MCG)) PEN,DIS [Concomitant]
  4. GLIPIZIDE [Concomitant]
  5. METFORMIN HCL [Concomitant]
  6. AVAPRO [Concomitant]
  7. SPIRONOLACTONE [Concomitant]
  8. LIPITOR [Concomitant]

REACTIONS (5)
  - BACK INJURY [None]
  - DRUG INEFFECTIVE [None]
  - INJECTION SITE ERYTHEMA [None]
  - INJECTION SITE PRURITUS [None]
  - MUSCLE SPASMS [None]
